FAERS Safety Report 12200352 (Version 3)
Quarter: 2016Q4

REPORT INFORMATION
  Report Type: Spontaneous
  Country: US (occurrence: US)
  Receive Date: 20160322
  Receipt Date: 20161026
  Transmission Date: 20170207
  Serious: No
  Sender: FDA-Public Use
  Company Number: PHEH2016US006500

PATIENT
  Age: 59 Year
  Sex: Male

DRUGS (1)
  1. VOTRIENT [Suspect]
     Active Substance: PAZOPANIB HYDROCHLORIDE
     Indication: RENAL CANCER
     Dosage: 800 MG, QD
     Route: 048
     Dates: start: 20160114

REACTIONS (6)
  - Skin disorder [Unknown]
  - Vomiting [Unknown]
  - Pain [Unknown]
  - Nausea [Unknown]
  - Abdominal pain upper [Unknown]
  - Dysphonia [Unknown]

NARRATIVE: CASE EVENT DATE: 20161014
